FAERS Safety Report 10264317 (Version 1)
Quarter: 2014Q2

REPORT INFORMATION
  Report Type: Spontaneous
  Country: US (occurrence: US)
  Receive Date: 20140627
  Receipt Date: 20140627
  Transmission Date: 20141212
  Serious: No
  Sender: FDA-Public Use
  Company Number: US-JNJFOC-20140618462

PATIENT
  Sex: Female
  Weight: 42.18 kg

DRUGS (1)
  1. DURAGESIC [Suspect]
     Indication: BACK PAIN
     Route: 062

REACTIONS (1)
  - Treatment noncompliance [Unknown]
